FAERS Safety Report 9657165 (Version 2)
Quarter: 2014Q3

REPORT INFORMATION
  Report Type: Spontaneous
  Country: US (occurrence: US)
  Receive Date: 20131030
  Receipt Date: 20140731
  Transmission Date: 20150326
  Serious: Yes (Hospitalization, Other)
  Sender: FDA-Public Use
  Company Number: US-009507513-1310USA013295

PATIENT
  Sex: Female
  Weight: 122.45 kg

DRUGS (1)
  1. NUVARING [Suspect]
     Active Substance: ETHINYL ESTRADIOL\ETONOGESTREL
     Indication: DYSFUNCTIONAL UTERINE BLEEDING
     Dosage: UNK
     Route: 067
     Dates: start: 20110602, end: 201107

REACTIONS (9)
  - Deep vein thrombosis [Unknown]
  - Ecchymosis [Unknown]
  - Vena cava filter insertion [Unknown]
  - Thrombectomy [Unknown]
  - Off label use [Unknown]
  - Fall [Unknown]
  - Cellulitis [Unknown]
  - Pulmonary embolism [Unknown]
  - Metrorrhagia [Unknown]

NARRATIVE: CASE EVENT DATE: 201106
